FAERS Safety Report 22091597 (Version 2)
Quarter: 2023Q1

REPORT INFORMATION
  Report Type: Spontaneous
  Country: DE (occurrence: None)
  Receive Date: 20230314
  Receipt Date: 20230322
  Transmission Date: 20230417
  Serious: Yes (Other)
  Sender: FDA-Public Use
  Company Number: DE-ROCHE-3306442

PATIENT
  Age: 58 Year
  Sex: Female

DRUGS (17)
  1. RITUXIMAB [Suspect]
     Active Substance: RITUXIMAB
     Indication: Diffuse large B-cell lymphoma
     Dosage: 1ST LINE R-CHOP
     Route: 065
     Dates: start: 201911, end: 202003
  2. RITUXIMAB [Suspect]
     Active Substance: RITUXIMAB
     Dosage: 2ND LINE R-DHAP,4 CYCLES
     Route: 065
     Dates: start: 202108, end: 202111
  3. RITUXIMAB [Suspect]
     Active Substance: RITUXIMAB
     Dosage: R-BEAM
     Route: 065
     Dates: start: 202112, end: 20211229
  4. RITUXIMAB [Suspect]
     Active Substance: RITUXIMAB
     Dosage: R-GEMOX, 3 CYCLES
     Route: 065
     Dates: start: 202207, end: 20220807
  5. CYCLOPHOSPHAMIDE [Suspect]
     Active Substance: CYCLOPHOSPHAMIDE
     Indication: Diffuse large B-cell lymphoma
     Dosage: 1ST LINE R-CHOP
     Route: 065
     Dates: start: 201911, end: 202003
  6. EPIRUBICIN [Suspect]
     Active Substance: EPIRUBICIN
     Indication: Diffuse large B-cell lymphoma
     Dosage: 1ST LINE R-CHOP
     Route: 065
     Dates: start: 201911, end: 202003
  7. VINCRISTINE [Suspect]
     Active Substance: VINCRISTINE
     Indication: Diffuse large B-cell lymphoma
     Dosage: 1ST LINE R-CHOP
     Route: 065
     Dates: start: 201911, end: 202003
  8. PREDNISONE [Suspect]
     Active Substance: PREDNISONE
     Indication: Diffuse large B-cell lymphoma
     Dosage: 1ST LINE R-CHOP
     Route: 065
     Dates: start: 201911, end: 202003
  9. DOXORUBICIN [Suspect]
     Active Substance: DOXORUBICIN
     Indication: Diffuse large B-cell lymphoma
     Dosage: 2ND LINE R-DHAP, 4 CYCLES
     Route: 065
     Dates: start: 202108, end: 202111
  10. DEXAMETHASONE [Suspect]
     Active Substance: DEXAMETHASONE
     Indication: Diffuse large B-cell lymphoma
     Dosage: 2ND LINE R-DHAP, 4 CYCLES
     Route: 065
     Dates: start: 202108, end: 202111
  11. CYTARABINE [Suspect]
     Active Substance: CYTARABINE
     Indication: Diffuse large B-cell lymphoma
     Dosage: 2ND LINE R-DHAP, 4 CYCLES
     Route: 065
     Dates: start: 202108, end: 202111
  12. CISPLATIN [Suspect]
     Active Substance: CISPLATIN
     Indication: Diffuse large B-cell lymphoma
     Dosage: 2ND LINE R-DHAP, 4 CYCLES
     Route: 065
     Dates: start: 202108, end: 202111
  13. BICNU [Suspect]
     Active Substance: CARMUSTINE
     Indication: Diffuse large B-cell lymphoma
     Dosage: R-BEAM
     Route: 065
     Dates: start: 202112, end: 20211229
  14. ETOPOSIDE [Suspect]
     Active Substance: ETOPOSIDE
     Indication: Diffuse large B-cell lymphoma
     Dosage: R-BEAM
     Route: 065
     Dates: start: 202112, end: 20211229
  15. MELPHALAN [Suspect]
     Active Substance: MELPHALAN
     Indication: Diffuse large B-cell lymphoma
     Dosage: R-BEAM
     Route: 065
     Dates: start: 202112, end: 20211229
  16. GEMCITABINE [Suspect]
     Active Substance: GEMCITABINE
     Indication: Diffuse large B-cell lymphoma
     Dosage: R-GEMOX, 3 CYCLES
     Route: 065
     Dates: start: 202207, end: 20220807
  17. OXALIPLATIN [Suspect]
     Active Substance: OXALIPLATIN
     Indication: Diffuse large B-cell lymphoma
     Dosage: R-GEMOX, 3 CYCLES
     Route: 065
     Dates: start: 202207, end: 20220807

REACTIONS (2)
  - Lymphoma [Not Recovered/Not Resolved]
  - Neuropathy peripheral [Recovering/Resolving]

NARRATIVE: CASE EVENT DATE: 20211101
